FAERS Safety Report 9134386 (Version 1)
Quarter: 2013Q1

REPORT INFORMATION
  Report Type: Spontaneous
  Country: BR (occurrence: BR)
  Receive Date: 20130304
  Receipt Date: 20130304
  Transmission Date: 20140127
  Serious: Yes (Other)
  Sender: FDA-Public Use
  Company Number: BR-ACCORD-016626

PATIENT
  Age: 32 Year
  Sex: Female
  Weight: 73 kg

DRUGS (5)
  1. PACLITAXEL [Suspect]
     Indication: BREAST CANCER METASTATIC
     Route: 042
     Dates: start: 20121219, end: 20130109
  2. ONDANSETRON [Concomitant]
     Route: 042
     Dates: start: 20130109, end: 20130109
  3. DIPHENHYDRAMINE [Concomitant]
     Route: 042
     Dates: start: 20130109, end: 20130109
  4. RANITIDINE [Concomitant]
     Route: 042
     Dates: start: 20130109, end: 20130109
  5. DEXAMETHASONE [Concomitant]
     Route: 042
     Dates: start: 20130109, end: 20130109

REACTIONS (2)
  - Arthralgia [Unknown]
  - Erythema [Recovered/Resolved]
